FAERS Safety Report 10052448 (Version 1)
Quarter: 2014Q2

REPORT INFORMATION
  Report Type: Spontaneous
  Country: ES (occurrence: None)
  Receive Date: 20140401
  Receipt Date: 20140401
  Transmission Date: 20141212
  Serious: Yes (Hospitalization, Disabling)
  Sender: FDA-Public Use
  Company Number: None

PATIENT
  Age: 25 Year
  Sex: Female
  Weight: 46 kg

DRUGS (1)
  1. AUGMENTINE [Suspect]
     Indication: TONSILLITIS
     Dates: start: 20131220, end: 20131230

REACTIONS (1)
  - Clostridium difficile infection [None]
